FAERS Safety Report 22648432 (Version 1)
Quarter: 2023Q2

REPORT INFORMATION
  Report Type: Report from Study
  Country: US (occurrence: None)
  Receive Date: 20230628
  Receipt Date: 20230628
  Transmission Date: 20230721
  Serious: Yes (Hospitalization)
  Sender: FDA-Public Use
  Company Number: US-ROCHE-3374163

PATIENT
  Age: 77 Year
  Sex: Male
  Weight: 97.5 kg

DRUGS (3)
  1. ATEZOLIZUMAB [Suspect]
     Active Substance: ATEZOLIZUMAB
     Indication: Bladder transitional cell carcinoma
     Dosage: ON 26-SEP-2022 MOST RECENT DOSE OF ATEZOLIZUMAB ADMINISTERED., 1200 MG IV ON DAY 1
     Route: 041
  2. ELIQUIS [Suspect]
     Active Substance: APIXABAN
     Indication: Atrial fibrillation
     Route: 065
  3. GEMCITABINE HYDROCHLORIDE [Suspect]
     Active Substance: GEMCITABINE HYDROCHLORIDE
     Indication: Bladder transitional cell carcinoma
     Dosage: TWICE WEEKLY FOR SIX WEEKS?GEMCITABINE LAST ADMINISTERED ON 18-MAY-2022
     Route: 042
     Dates: start: 20220411

REACTIONS (2)
  - Anaemia [Unknown]
  - Arterial injury [Unknown]

NARRATIVE: CASE EVENT DATE: 20221018
